FAERS Safety Report 20119391 (Version 1)
Quarter: 2021Q4

REPORT INFORMATION
  Report Type: Spontaneous
  Country: JP (occurrence: JP)
  Receive Date: 20211126
  Receipt Date: 20211126
  Transmission Date: 20220303
  Serious: Yes (Hospitalization)
  Sender: FDA-Public Use
  Company Number: JP-ALVOGEN-2021-ALVOGEN-117829

PATIENT
  Age: 41 Year
  Sex: Female

DRUGS (4)
  1. DEXAMETHASONE [Suspect]
     Active Substance: DEXAMETHASONE
     Indication: POEMS syndrome
  2. LENALIDOMIDE [Suspect]
     Active Substance: LENALIDOMIDE
     Indication: POEMS syndrome
  3. POMALIDOMIDE [Suspect]
     Active Substance: POMALIDOMIDE
     Indication: POEMS syndrome
  4. ASPIRIN [Concomitant]
     Active Substance: ASPIRIN
     Indication: Prophylaxis

REACTIONS (4)
  - POEMS syndrome [Recovered/Resolved]
  - Disease progression [Recovered/Resolved]
  - Renal infarct [Recovered/Resolved]
  - Cerebral infarction [Recovered/Resolved]
